FAERS Safety Report 16968607 (Version 2)
Quarter: 2019Q4

REPORT INFORMATION
  Report Type: Report from Study
  Country: None (occurrence: BR)
  Receive Date: 20191029
  Receipt Date: 20191104
  Transmission Date: 20200122
  Serious: Yes (Hospitalization, Other)
  Sender: FDA-Public Use
  Company Number: BR-ABBVIE-19K-020-2977046-00

PATIENT
  Sex: Female
  Weight: 53 kg

DRUGS (3)
  1. PREDNISOLONE. [Concomitant]
     Active Substance: PREDNISOLONE
     Indication: RHEUMATOID ARTHRITIS
     Dates: end: 2015
  2. LOSARTAN POTASSIUM. [Concomitant]
     Active Substance: LOSARTAN POTASSIUM
     Indication: HYPERTENSION
  3. HUMIRA [Suspect]
     Active Substance: ADALIMUMAB
     Indication: RHEUMATOID ARTHRITIS
     Route: 058
     Dates: start: 20180816, end: 201907

REACTIONS (19)
  - Fall [Unknown]
  - Weight decreased [Unknown]
  - Gait disturbance [Not Recovered/Not Resolved]
  - Fall [Unknown]
  - Arthralgia [Not Recovered/Not Resolved]
  - Blood cholesterol increased [Unknown]
  - Craniocerebral injury [Recovering/Resolving]
  - Insomnia [Not Recovered/Not Resolved]
  - Upper limb fracture [Recovered/Resolved]
  - Cerebral disorder [Unknown]
  - Memory impairment [Unknown]
  - Disorientation [Not Recovered/Not Resolved]
  - Cerebral thrombosis [Unknown]
  - Joint dislocation [Recovered/Resolved]
  - Peripheral swelling [Not Recovered/Not Resolved]
  - Venous occlusion [Unknown]
  - Liver disorder [Unknown]
  - Paraesthesia [Unknown]
  - Pain in extremity [Not Recovered/Not Resolved]

NARRATIVE: CASE EVENT DATE: 201907
